FAERS Safety Report 11153242 (Version 1)
Quarter: 2015Q2

REPORT INFORMATION
  Report Type: Spontaneous
  Country: PL (occurrence: PL)
  Receive Date: 20150601
  Receipt Date: 20150601
  Transmission Date: 20150821
  Serious: Yes (Other)
  Sender: FDA-Public Use
  Company Number: PL-TEVA-566552ISR

PATIENT
  Age: 59 Year
  Sex: Male
  Weight: 74 kg

DRUGS (4)
  1. 5 FLUOROURACIL [Suspect]
     Active Substance: FLUOROURACIL
     Indication: COLON CANCER
     Route: 042
     Dates: start: 20130730
  2. 5 FLUOROURACIL [Suspect]
     Active Substance: FLUOROURACIL
     Route: 042
     Dates: start: 20130730
  3. LEUKOVORIN [Suspect]
     Active Substance: LEUCOVORIN SODIUM
     Indication: COLON CANCER
     Route: 042
     Dates: start: 20130730
  4. OXALIPLATYNA [Suspect]
     Active Substance: OXALIPLATIN
     Indication: COLON CANCER
     Route: 042
     Dates: start: 20130730

REACTIONS (1)
  - Neutropenia [Recovering/Resolving]

NARRATIVE: CASE EVENT DATE: 20131210
